FAERS Safety Report 25888916 (Version 2)
Quarter: 2025Q4

REPORT INFORMATION
  Report Type: Report from Study
  Country: US (occurrence: US)
  Receive Date: 20251007
  Receipt Date: 20251008
  Transmission Date: 20260118
  Serious: Yes (Hospitalization)
  Sender: GILEAD
  Company Number: US-GILEAD-2025-0731216

PATIENT
  Age: 74 Year
  Sex: Female

DRUGS (3)
  1. AMBRISENTAN [Suspect]
     Active Substance: AMBRISENTAN
     Indication: Pulmonary arterial hypertension
     Dosage: 5MG BY MOUTH DAILY
     Route: 048
     Dates: start: 201612
  2. TYVASO [Suspect]
     Active Substance: TREPROSTINIL
     Indication: Pulmonary arterial hypertension
     Dosage: 64MCG BY MOUTH 4 TIMES A DAY
     Route: 048
     Dates: start: 202208
  3. LASIX [Concomitant]
     Active Substance: FUROSEMIDE

REACTIONS (1)
  - Hypervolaemia [Unknown]
